FAERS Safety Report 4683424-7 (Version None)
Quarter: 2005Q2

REPORT INFORMATION
  Report Type: 
  Country: None (occurrence: None)
  Receive Date: 20050602
  Receipt Date: 20050331
  Transmission Date: 20051028
  Serious: No
  Sender: FDA-Public Use
  Company Number: 200510642BWH

PATIENT
  Sex: Male

DRUGS (4)
  1. LEVITRA [Suspect]
  2. ASACOL [Concomitant]
  3. AZATHIORINE [Concomitant]
  4. NARIL [Concomitant]

REACTIONS (1)
  - DRUG INEFFECTIVE [None]
